FAERS Safety Report 8833180 (Version 1)
Quarter: 2012Q4

REPORT INFORMATION
  Report Type: 
  Country: JP (occurrence: JP)
  Receive Date: 20121010
  Receipt Date: 20121010
  Transmission Date: 20130627
  Serious: Yes (Other)
  Sender: FDA-Public Use
  Company Number: JP-ASTELLAS-2012JP009417

PATIENT
  Age: 18 Year
  Sex: Male

DRUGS (9)
  1. PROGRAF [Suspect]
     Indication: PROPHYLAXIS AGAINST GRAFT VERSUS HOST DISEASE
     Route: 065
  2. MYCOPHENOLATE MOFETIL [Concomitant]
     Indication: PROPHYLAXIS AGAINST GRAFT VERSUS HOST DISEASE
     Route: 065
  3. METHOTREXATE [Concomitant]
     Indication: PROPHYLAXIS AGAINST GRAFT VERSUS HOST DISEASE
     Route: 065
  4. FUNGUARD [Concomitant]
     Indication: INFECTION PROPHYLAXIS
     Dosage: 5 mg/kg, UID/QD
     Route: 042
  5. VORICONAZOLE [Concomitant]
     Indication: INFECTION PROPHYLAXIS
     Dosage: 6 mg/kg, bid
     Route: 042
  6. VORICONAZOLE [Concomitant]
     Dosage: 4 mg/kg, Q12 hours
     Route: 042
  7. VORICONAZOLE [Concomitant]
     Route: 042
  8. LIPOSOMAL AMPHOTERICIN B [Concomitant]
     Indication: INFECTION PROPHYLAXIS
     Dosage: 5 mg/kg, UID/QD
     Route: 042
  9. LIPOSOMAL AMPHOTERICIN B [Concomitant]
     Route: 042

REACTIONS (2)
  - Drug ineffective [Unknown]
  - Acute graft versus host disease [Unknown]
